FAERS Safety Report 8940715 (Version 1)
Quarter: 2012Q4

REPORT INFORMATION
  Report Type: 
  Country: IT (occurrence: IT)
  Receive Date: 20121203
  Receipt Date: 20121203
  Transmission Date: 20130627
  Serious: Yes (Hospitalization, Other)
  Sender: FDA-Public Use
  Company Number: IT-PFIZER INC-2012299839

PATIENT
  Age: 62 Year
  Sex: Male

DRUGS (4)
  1. ZOLOFT [Suspect]
     Dosage: unknown dosage
     Route: 048
     Dates: start: 20120716, end: 20120716
  2. SEROQUEL [Suspect]
     Dosage: unknown dosage
     Route: 048
     Dates: start: 20120716, end: 20120716
  3. GARDENALE [Suspect]
     Dosage: unknown dosage
     Route: 048
     Dates: start: 20120716, end: 20120716
  4. TOLEP [Suspect]
     Dosage: unknown dosage
     Route: 048
     Dates: start: 20120716, end: 20120716

REACTIONS (4)
  - Drug administration error [Recovered/Resolved]
  - Sopor [Recovered/Resolved]
  - Blood pressure decreased [Recovered/Resolved]
  - Altered state of consciousness [Recovered/Resolved]
